FAERS Safety Report 9796675 (Version 1)
Quarter: 2014Q1

REPORT INFORMATION
  Report Type: Spontaneous
  Country: CA (occurrence: CA)
  Receive Date: 20140103
  Receipt Date: 20140103
  Transmission Date: 20141002
  Serious: Yes (Congenital Anomaly)
  Sender: FDA-Public Use
  Company Number: PHHY2013CA152373

PATIENT
  Sex: Male

DRUGS (1)
  1. METHOTREXATE [Suspect]
     Dosage: (MATERNAL DOSE: 10 MG QW)
     Route: 064

REACTIONS (3)
  - Trisomy 21 [Unknown]
  - Atrioventricular septal defect [Unknown]
  - Foetal exposure during pregnancy [Unknown]
